FAERS Safety Report 24217050 (Version 1)
Quarter: 2024Q3

REPORT INFORMATION
  Report Type: Spontaneous
  Country: US (occurrence: None)
  Receive Date: 20240815
  Receipt Date: 20240815
  Transmission Date: 20241016
  Serious: Yes (Hospitalization)
  Sender: Public
  Company Number: None

PATIENT
  Age: 79 Year
  Sex: Male

DRUGS (1)
  1. LENALIDOMIDE [Suspect]
     Active Substance: LENALIDOMIDE
     Indication: Plasma cell myeloma
     Dosage: OTHER FREQUENCY : DAILY FOR 14 DAYS, THEN 7 DAYS OFF;?

REACTIONS (7)
  - Asthenia [None]
  - Dyspnoea [None]
  - Gait disturbance [None]
  - Bowel movement irregularity [None]
  - Pneumonia [None]
  - Haemoglobin decreased [None]
  - Burning sensation [None]
